FAERS Safety Report 17151784 (Version 2)
Quarter: 2019Q4

REPORT INFORMATION
  Report Type: Spontaneous
  Country: FR (occurrence: FR)
  Receive Date: 20191213
  Receipt Date: 20191220
  Transmission Date: 20200122
  Serious: Yes (Death)
  Sender: FDA-Public Use
  Company Number: FR-MYLANLABS-2019M1122229

PATIENT
  Age: 81 Year
  Sex: Male

DRUGS (11)
  1. LASILIX                            /00032601/ [Concomitant]
     Active Substance: FUROSEMIDE
     Dosage: 2 DOSAGE FORM, QD
     Route: 048
  2. CORDARONE [Concomitant]
     Active Substance: AMIODARONE HYDROCHLORIDE
     Dosage: UNK
     Route: 048
     Dates: start: 201901, end: 20190212
  3. LASILIX SPECIAL                    /00032601/ [Concomitant]
     Active Substance: FUROSEMIDE
     Dosage: UNK
     Route: 042
     Dates: start: 20190711
  4. TRIATEC                            /00885601/ [Concomitant]
     Active Substance: RAMIPRIL
     Dosage: 1 DOSAGE FORM, QD
     Route: 048
  5. NEBIVOLOL. [Concomitant]
     Active Substance: NEBIVOLOL
     Dosage: 10 MILLIGRAM, QD
     Route: 048
  6. RISORDAN                           /07346501/ [Concomitant]
     Active Substance: ISOSORBIDE DINITRATE
     Dosage: UNK
     Route: 042
     Dates: start: 20190711
  7. FLUOXETINE [Concomitant]
     Active Substance: FLUOXETINE HYDROCHLORIDE
     Dosage: 20 MILLIGRAM, QD
     Route: 048
  8. PRAVASTATINE                       /00880402/ [Concomitant]
     Active Substance: PRAVASTATIN SODIUM
     Dosage: 40 MILLIGRAM, QD
     Route: 048
  9. METFORMIN [Suspect]
     Active Substance: METFORMIN HYDROCHLORIDE
     Indication: TYPE 2 DIABETES MELLITUS
     Dosage: 1000 MILLIGRAM, QD
     Route: 048
     Dates: end: 20190715
  10. SERETIDE [Concomitant]
     Active Substance: FLUTICASONE PROPIONATE\SALMETEROL XINAFOATE
     Dosage: UNK
     Route: 055
  11. ELIQUIS [Concomitant]
     Active Substance: APIXABAN
     Dosage: 2 DOSAGE FORM, QD
     Route: 048

REACTIONS (4)
  - Coma uraemic [Fatal]
  - Metabolic acidosis [Fatal]
  - Lactic acidosis [Fatal]
  - Acute kidney injury [Fatal]

NARRATIVE: CASE EVENT DATE: 20190715
